FAERS Safety Report 14607456 (Version 1)
Quarter: 2018Q1

REPORT INFORMATION
  Report Type: Spontaneous
  Country: ES (occurrence: ES)
  Receive Date: 20180307
  Receipt Date: 20180307
  Transmission Date: 20180509
  Serious: Yes (Other)
  Sender: FDA-Public Use
  Company Number: ES-AMGEN-ESPSP2018028676

PATIENT
  Age: 76 Year
  Sex: Female

DRUGS (2)
  1. PROLIA [Suspect]
     Active Substance: DENOSUMAB
     Indication: PRODUCT USED FOR UNKNOWN INDICATION
     Dosage: UNK
     Route: 065
     Dates: start: 201402, end: 201602
  2. ALENDRONATE [Concomitant]
     Active Substance: ALENDRONATE SODIUM

REACTIONS (2)
  - Pathological fracture [Unknown]
  - Spinal fracture [Unknown]

NARRATIVE: CASE EVENT DATE: 2017
